FAERS Safety Report 10882931 (Version 1)
Quarter: 2015Q1

REPORT INFORMATION
  Report Type: Spontaneous
  Country: US (occurrence: None)
  Receive Date: 20150226
  Receipt Date: 20150226
  Transmission Date: 20150721
  Serious: Yes (Disabling)
  Sender: FDA-Public Use
  Company Number: None

PATIENT
  Age: 47 Year
  Sex: Female

DRUGS (5)
  1. VITAMIN D [Concomitant]
     Active Substance: CHOLECALCIFEROL
  2. MYCOPHENOLATE [Concomitant]
     Active Substance: MYCOPHENOLIC ACID
  3. PREDNISONE. [Suspect]
     Active Substance: PREDNISONE
     Dosage: 2 TABLETS
     Route: 048
  4. PREDNISONE ACETATE EYEDROP [Concomitant]
  5. CALCIUM [Concomitant]
     Active Substance: CALCIUM

REACTIONS (15)
  - Nausea [None]
  - Anxiety [None]
  - Muscle disorder [None]
  - Mood altered [None]
  - Nervousness [None]
  - Dizziness [None]
  - Rash [None]
  - Tension [None]
  - Seizure [None]
  - Fluid retention [None]
  - Weight increased [None]
  - Confusional state [None]
  - Insomnia [None]
  - Ocular discomfort [None]
  - Stress [None]
